FAERS Safety Report 8505057-4 (Version None)
Quarter: 2012Q3

REPORT INFORMATION
  Report Type: 
  Country: None (occurrence: None)
  Receive Date: 20120712
  Receipt Date: 20120701
  Transmission Date: 20120928
  Serious: Yes (Hospitalization)
  Sender: FDA-Public Use
  Company Number: GB-PERRIGO-12GB005629

PATIENT
  Age: 2 Year
  Sex: Male

DRUGS (1)
  1. LORATADINE [Suspect]
     Indication: PRODUCT USED FOR UNKNOWN INDICATION
     Dosage: 10 MG, QD
     Route: 048

REACTIONS (2)
  - ADVERSE EVENT [None]
  - DRUG ADMINISTERED TO PATIENT OF INAPPROPRIATE AGE [None]
